FAERS Safety Report 8337355-1 (Version None)
Quarter: 2012Q2

REPORT INFORMATION
  Report Type: 
  Country: None (occurrence: None)
  Receive Date: 20120504
  Receipt Date: 20120502
  Transmission Date: 20120825
  Serious: Yes (Hospitalization)
  Sender: FDA-Public Use
  Company Number: AT-ROCHE-1065237

PATIENT
  Sex: Male

DRUGS (4)
  1. AVASTIN [Suspect]
     Dosage: MAINTENANCE THERAPY ALONG WITH RADIOTHERAPY 45 (GY)
     Dates: start: 20111101
  2. ALIMTA [Concomitant]
     Dates: start: 20110301, end: 20111101
  3. AVASTIN [Suspect]
     Indication: ADENOCARCINOMA
     Dates: start: 20110301, end: 20111101
  4. CARBOPLATIN [Concomitant]
     Dates: start: 20110301, end: 20111101

REACTIONS (1)
  - OESOPHAGITIS [None]
